FAERS Safety Report 8585631 (Version 3)
Quarter: 2015Q2

REPORT INFORMATION
  Report Type: Spontaneous
  Country: US (occurrence: US)
  Receive Date: 20120530
  Receipt Date: 20150415
  Transmission Date: 20150821
  Serious: No
  Sender: FDA-Public Use
  Company Number: US-GLAXOSMITHKLINE-A0943910A

PATIENT
  Age: 25 Year
  Sex: Female
  Weight: 64 kg

DRUGS (4)
  1. FLOLAN [Suspect]
     Active Substance: EPOPROSTENOL SODIUM
     Indication: PULMONARY ARTERIAL HYPERTENSION
     Dosage: CONTINUOUSLY43 NG/KG/MIN42.5 NG/KG/MINCONCENTRATION: 45,000 NG/MLVIAL STRENGTH: 1.5 MG
     Route: 042
     Dates: start: 20080819
  2. FLOLAN [Suspect]
     Active Substance: EPOPROSTENOL SODIUM
     Dates: start: 20080826
  3. FLOLAN [Suspect]
     Active Substance: EPOPROSTENOL SODIUM
     Dosage: 41.5 NG/KG/MIN (CONCENTRATION 60,000 NG/ML, PUMP RATE 68 ML/DAY, VIAL STRENGTH 1.5 MG), CO
     Route: 042
  4. FLOLAN [Suspect]
     Active Substance: EPOPROSTENOL SODIUM
     Dates: start: 20080826

REACTIONS (10)
  - Device leakage [Unknown]
  - Pyrexia [Unknown]
  - Dizziness [Unknown]
  - Device breakage [Unknown]
  - Application site inflammation [Unknown]
  - Palpitations [Unknown]
  - Chills [Unknown]
  - Application site pruritus [Unknown]
  - Application site rash [Unknown]
  - Application site erythema [Unknown]

NARRATIVE: CASE EVENT DATE: 20110902
